FAERS Safety Report 5872857-9 (Version None)
Quarter: 2008Q3

REPORT INFORMATION
  Report Type: 
  Country: None (occurrence: None)
  Receive Date: 20080905
  Receipt Date: 20080711
  Transmission Date: 20090109
  Serious: Yes (Hospitalization, Congenital Anomaly)
  Sender: FDA-Public Use
  Company Number: FR-MERCK-0505FRA00059B1

PATIENT

DRUGS (6)
  1. SINGULAIR [Suspect]
     Indication: ASTHMA
     Route: 064
  2. ACETYLCYSTEINE [Suspect]
     Route: 064
  3. FENSPIRIDE HYDROCHLORIDE [Suspect]
     Route: 064
  4. CETIRIZINE HYDROCHLORIDE [Suspect]
     Route: 064
  5. CEFPODOXIME PROXETIL [Suspect]
     Route: 064
  6. PREDNISONE [Suspect]
     Route: 064

REACTIONS (1)
  - SPINA BIFIDA [None]
